FAERS Safety Report 13165975 (Version 2)
Quarter: 2017Q2

REPORT INFORMATION
  Report Type: Spontaneous
  Country: US (occurrence: US)
  Receive Date: 20170131
  Receipt Date: 20170403
  Transmission Date: 20170830
  Serious: Yes (Death, Life-Threatening, Hospitalization, Other)
  Sender: FDA-Public Use
  Company Number: US-SUN PHARMACEUTICAL INDUSTRIES LTD-2016US-130963

PATIENT
  Age: 60 Year
  Sex: Male

DRUGS (2)
  1. DOCETAXEL. [Suspect]
     Active Substance: DOCETAXEL
     Indication: BREAST CANCER
     Dosage: 3 CYCLES
     Route: 065
  2. CYCLOPHOSPHAMIDE. [Suspect]
     Active Substance: CYCLOPHOSPHAMIDE
     Indication: BREAST CANCER
     Dosage: 3 CYCLES
     Route: 065

REACTIONS (7)
  - Metabolic acidosis [Fatal]
  - Stevens-Johnson syndrome [Fatal]
  - Respiratory failure [Fatal]
  - Pulmonary alveolar haemorrhage [Fatal]
  - Disseminated intravascular coagulation [Fatal]
  - Multiple organ dysfunction syndrome [Fatal]
  - Pneumocystis jirovecii pneumonia [Fatal]
